FAERS Safety Report 4850435-8 (Version None)
Quarter: 2005Q4

REPORT INFORMATION
  Report Type: 
  Country: None (occurrence: None)
  Receive Date: 20051125
  Receipt Date: 20050610
  Transmission Date: 20060501
  Serious: Yes (Other)
  Sender: FDA-Public Use
  Company Number: 2005054566

PATIENT
  Sex: Male

DRUGS (4)
  1. TIKOSYN [Suspect]
     Indication: ATRIAL FIBRILLATION
     Dosage: 1000 MG  (500 MG, TWICE DAILY), ORAL
     Route: 048
     Dates: start: 20050322
  2. NORVASC [Suspect]
     Indication: HYPERTENSION
     Dosage: ORAL
     Route: 048
     Dates: end: 20041101
  3. TOPROL-XL [Suspect]
     Indication: HYPERTENSION
     Dosage: ORAL
     Route: 048
     Dates: end: 20041101
  4. ASPIRIN [Concomitant]

REACTIONS (9)
  - ATRIAL FIBRILLATION [None]
  - DISORIENTATION [None]
  - DISTURBANCE IN ATTENTION [None]
  - DIZZINESS [None]
  - HYPOAESTHESIA [None]
  - HYPOTENSION [None]
  - INNER EAR DISORDER [None]
  - PARAESTHESIA [None]
  - WEIGHT LOSS POOR [None]
